FAERS Safety Report 20311484 (Version 5)
Quarter: 2022Q2

REPORT INFORMATION
  Report Type: Report from Study
  Country: DE (occurrence: None)
  Receive Date: 20220108
  Receipt Date: 20220523
  Transmission Date: 20220721
  Serious: Yes (Hospitalization)
  Sender: FDA-Public Use
  Company Number: DE-ROCHE-2993589

PATIENT
  Age: 35 Year
  Sex: Female
  Weight: 59 kg

DRUGS (18)
  1. ATEZOLIZUMAB [Suspect]
     Active Substance: ATEZOLIZUMAB
     Indication: Triple negative breast cancer
     Dosage: ON 30/NOV/2021, RECEIVED MOST RECENT DOSE OF ATEZOLIZUMAB BEFORE EVENT.
     Route: 041
     Dates: start: 20211109
  2. PACLITAXEL [Suspect]
     Active Substance: PACLITAXEL
     Indication: Triple negative breast cancer
     Dosage: ON 30/NOV/2021, RECEIVED MOST RECENT DOSE OF PACLITAXEL BEFORE EVENT.?ON 07/DEC/2021, LAST DOSE PRIO
     Route: 042
     Dates: start: 20211109
  3. CARBOPLATIN [Suspect]
     Active Substance: CARBOPLATIN
     Indication: Triple negative breast cancer
     Dosage: ON 30/NOV/2021, RECEIVED MOST RECENT DOSE OF CARBOPLATIN BEFORE EVENT.?ON 07/DEC/2021, LAST DOSE PRI
     Route: 042
     Dates: start: 20211109
  4. FILGRASTIM [Concomitant]
     Active Substance: FILGRASTIM
     Dosage: 30 MIO. UNITS AS NEEDED
     Dates: start: 20211120, end: 20220317
  5. FILGRASTIM [Concomitant]
     Active Substance: FILGRASTIM
     Dates: start: 20211120
  6. PREDNISOLONE [Concomitant]
     Active Substance: PREDNISOLONE
     Dates: start: 20211123, end: 20211123
  7. PREDNISOLONE [Concomitant]
     Active Substance: PREDNISOLONE
     Dates: start: 20211109, end: 20211109
  8. CLEMASTINE [Concomitant]
     Active Substance: CLEMASTINE
     Dates: start: 20211109, end: 20211109
  9. CLEMASTINE [Concomitant]
     Active Substance: CLEMASTINE
     Dates: start: 20211123, end: 20211123
  10. DEXAMETHASONE [Concomitant]
     Active Substance: DEXAMETHASONE
     Dates: start: 20211109
  11. DEXAMETHASONE [Concomitant]
     Active Substance: DEXAMETHASONE
     Dates: start: 20211129
  12. PANTOPRAZOLE [Concomitant]
     Active Substance: PANTOPRAZOLE
     Dates: start: 20211201
  13. PANTOPRAZOLE [Concomitant]
     Active Substance: PANTOPRAZOLE
     Dates: start: 20211109
  14. PANTOPRAZOLE [Concomitant]
     Active Substance: PANTOPRAZOLE
     Dates: start: 20211116, end: 20211130
  15. APREPITANT [Concomitant]
     Active Substance: APREPITANT
     Dates: start: 20211109
  16. APREPITANT [Concomitant]
     Active Substance: APREPITANT
     Dates: start: 20211110
  17. GRANISETRONE [Concomitant]
     Dates: start: 20211109
  18. NADROPARINA [Concomitant]
     Dates: start: 20211201, end: 20211202

REACTIONS (1)
  - Pyrexia [Recovered/Resolved]

NARRATIVE: CASE EVENT DATE: 20211130
